FAERS Safety Report 6943563-4 (Version None)
Quarter: 2010Q3

REPORT INFORMATION
  Report Type: 
  Country: None (occurrence: None)
  Receive Date: 20100826
  Receipt Date: 20100818
  Transmission Date: 20110219
  Serious: Yes (Hospitalization)
  Sender: FDA-Public Use
  Company Number: GB-GENENTECH-303719

PATIENT
  Sex: Male
  Weight: 56.5 kg

DRUGS (10)
  1. RITUXIMAB [Suspect]
     Indication: DIFFUSE LARGE B-CELL LYMPHOMA
     Dosage: 620 MG, QAM
     Route: 042
     Dates: start: 20100514, end: 20100514
  2. GEMCITABINE [Suspect]
     Indication: DIFFUSE LARGE B-CELL LYMPHOMA
     Dosage: 1216 MG, QAM
     Route: 042
     Dates: start: 20100514, end: 20100524
  3. CYCLOPHOSPHAMIDE [Suspect]
     Indication: DIFFUSE LARGE B-CELL LYMPHOMA
     Dosage: 1300 MG, QAM
     Route: 042
     Dates: start: 20100514, end: 20100514
  4. VINCRISTINE [Suspect]
     Indication: DIFFUSE LARGE B-CELL LYMPHOMA
     Dosage: 2 MG, QAM
     Route: 042
     Dates: start: 20100514, end: 20100514
  5. PREDNISOLONE [Suspect]
     Indication: DIFFUSE LARGE B-CELL LYMPHOMA
     Dosage: 60 MG, UNK
     Route: 048
     Dates: start: 20100504
  6. PREDNISOLONE [Suspect]
     Dosage: 100 MG, QAM
     Route: 048
     Dates: start: 20100514, end: 20100518
  7. PEGFILGRASTIM [Suspect]
     Indication: DIFFUSE LARGE B-CELL LYMPHOMA
     Dosage: 6 MG, SINGLE
     Route: 058
     Dates: start: 20100524, end: 20100524
  8. LANSOPRAZOLE [Concomitant]
     Indication: DUODENAL ULCER
     Dosage: 30 MG, QAM
     Route: 048
     Dates: start: 19970101
  9. TAMSULOSIN HCL [Concomitant]
     Indication: MICTURITION URGENCY
     Dosage: 400 MG, QAM
     Route: 048
     Dates: start: 20100526
  10. ALLOPURINOL [Concomitant]
     Indication: PROPHYLAXIS
     Dosage: 30 MG, QAM
     Route: 048
     Dates: start: 20100514

REACTIONS (2)
  - MALAISE [None]
  - MYOPATHY [None]
